FAERS Safety Report 6031540-X (Version None)
Quarter: 2008Q4

REPORT INFORMATION
  Report Type: 
  Country: None (occurrence: None)
  Receive Date: 20081222
  Receipt Date: 20081021
  Transmission Date: 20090506
  Serious: No
  Sender: FDA-Public Use
  Company Number: US-WYE-H06486208

PATIENT
  Age: 52 Year
  Sex: Female
  Weight: 71.73 kg

DRUGS (4)
  1. PRISTIQ [Suspect]
     Indication: DEPRESSION
     Dosage: 50 MG WHOLE TABLET, ORAL, 50 MG TABLET CUT IN HALF, ORAL
     Route: 048
     Dates: start: 20081003, end: 20081017
  2. PRISTIQ [Suspect]
     Indication: DEPRESSION
     Dosage: 50 MG WHOLE TABLET, ORAL, 50 MG TABLET CUT IN HALF, ORAL
     Route: 048
     Dates: start: 20081018
  3. CRESTOR [Concomitant]
  4. MULTI-VITAMINS [Concomitant]

REACTIONS (2)
  - HYPERSOMNIA [None]
  - SOMNOLENCE [None]
